FAERS Safety Report 8197171-0 (Version None)
Quarter: 2012Q1

REPORT INFORMATION
  Report Type: 
  Country: None (occurrence: None)
  Receive Date: 20120309
  Receipt Date: 20120306
  Transmission Date: 20120608
  Serious: Yes (Death)
  Sender: FDA-Public Use
  Company Number: US-CELGENEUS-163-21880-12010482

PATIENT
  Sex: Female

DRUGS (4)
  1. MORPHINE SULFATE [Concomitant]
     Dosage: 30 MILLIGRAM
     Route: 048
  2. PROZAC [Concomitant]
     Dosage: 40 MILLIGRAM
     Route: 048
  3. DILTIAZEM HCL [Concomitant]
     Dosage: 180 MILLIGRAM
     Route: 048
  4. REVLIMID [Suspect]
     Dosage: 5 MILLIGRAM
     Route: 048
     Dates: start: 20111208

REACTIONS (1)
  - MYELODYSPLASTIC SYNDROME [None]
